FAERS Safety Report 7230395-5 (Version None)
Quarter: 2011Q1

REPORT INFORMATION
  Report Type: 
  Country: None (occurrence: None)
  Receive Date: 20110118
  Receipt Date: 20110110
  Transmission Date: 20110831
  Serious: Yes (Other)
  Sender: FDA-Public Use
  Company Number: IT-TYCO HEALTHCARE/MALLINCKRODT-T201100045

PATIENT

DRUGS (3)
  1. TRIIODOTHYRONINE [Concomitant]
     Indication: HYPERTHYROIDISM
     Dosage: UNK
  2. SODIUM IODIDE I 131 [Suspect]
     Indication: HYPERTHYROIDISM
     Dosage: UNK
  3. METHIMAZOLE [Concomitant]
     Indication: HYPERTHYROIDISM
     Dosage: UNK

REACTIONS (1)
  - HYPOTHYROIDISM [None]
